FAERS Safety Report 10410283 (Version 4)
Quarter: 2014Q4

REPORT INFORMATION
  Report Type: Report from Study
  Country: CA (occurrence: CA)
  Receive Date: 20140826
  Receipt Date: 20141105
  Transmission Date: 20150528
  Serious: Yes (Hospitalization, Other)
  Sender: FDA-Public Use
  Company Number: CA-JNJFOC-20140822177

PATIENT
  Age: 29 Year
  Sex: Male
  Weight: 80 kg

DRUGS (5)
  1. VANCOMYCIN [Concomitant]
     Active Substance: VANCOMYCIN
     Route: 048
     Dates: end: 20140917
  2. REMICADE [Suspect]
     Active Substance: INFLIXIMAB
     Indication: COLITIS ULCERATIVE
     Dosage: HAD 3 DOSES IN TOTAL
     Route: 042
     Dates: start: 20140811
  3. REMICADE [Suspect]
     Active Substance: INFLIXIMAB
     Indication: COLITIS ULCERATIVE
     Route: 042
     Dates: start: 20110811
  4. METHOTREXATE [Concomitant]
     Active Substance: METHOTREXATE
     Dosage: 5 TABLETS WEEKLY FOR 3 WEEKS
     Route: 048
     Dates: end: 20140901
  5. PREDNISONE. [Concomitant]
     Active Substance: PREDNISONE
     Indication: COLITIS
     Dosage: TAPERING DOSE FROM JULY 2014.THE PATIENT WAS ON 1MG DAILY TILL NEXT WEEK TO THE TIME OF THIS REPORT.
     Route: 048

REACTIONS (4)
  - Testicular embryonal carcinoma [Unknown]
  - Lymphoma [Recovered/Resolved]
  - Lung neoplasm malignant [Unknown]
  - Pregnancy of partner [Recovered/Resolved]

NARRATIVE: CASE EVENT DATE: 20140214
